FAERS Safety Report 17487699 (Version 1)
Quarter: 2020Q1

REPORT INFORMATION
  Report Type: Spontaneous
  Country: US (occurrence: US)
  Receive Date: 20200303
  Receipt Date: 20200303
  Transmission Date: 20200409
  Serious: Yes (Hospitalization)
  Sender: FDA-Public Use
  Company Number: US-MYLANLABS-2020M1021604

PATIENT
  Age: 58 Year
  Sex: Male

DRUGS (1)
  1. SULPHAMETHOXAZOLE/TRIMETHOPRIM [Suspect]
     Active Substance: SULFAMETHOXAZOLE\TRIMETHOPRIM
     Indication: PRODUCT USED FOR UNKNOWN INDICATION
     Dosage: UNK
     Route: 065

REACTIONS (7)
  - Acute kidney injury [Unknown]
  - Gastric haemorrhage [Unknown]
  - Ischaemic hepatitis [Unknown]
  - Jaundice [Unknown]
  - Dyspnoea [Unknown]
  - Gastrointestinal ischaemia [Unknown]
  - Pancreatitis necrotising [Unknown]
